FAERS Safety Report 23687232 (Version 1)
Quarter: 2024Q1

REPORT INFORMATION
  Report Type: Spontaneous
  Country: CA (occurrence: CA)
  Receive Date: 20240329
  Receipt Date: 20240329
  Transmission Date: 20240410
  Serious: Yes (Hospitalization)
  Sender: FDA-Public Use
  Company Number: CA-TEVA-VS-3175861

PATIENT
  Age: 27 Year
  Sex: Female

DRUGS (1)
  1. LEFLUNOMIDE [Suspect]
     Active Substance: LEFLUNOMIDE
     Indication: Juvenile idiopathic arthritis
     Dosage: DOSE FORM; NOT SPECIFIED
     Route: 065

REACTIONS (11)
  - Urine protein/creatinine ratio increased [Unknown]
  - Anaemia [Unknown]
  - Antinuclear antibody positive [Unknown]
  - Arthralgia [Unknown]
  - C-reactive protein increased [Unknown]
  - Caesarean section [Unknown]
  - Drug metabolite level high [Unknown]
  - Foetal heart rate abnormal [Unknown]
  - Hypertension [Unknown]
  - Maternal exposure during pregnancy [Unknown]
  - Pre-eclampsia [Unknown]
